FAERS Safety Report 5682162-1 (Version None)
Quarter: 2008Q1

REPORT INFORMATION
  Report Type: 
  Country: None (occurrence: None)
  Receive Date: 20080327
  Receipt Date: 20080324
  Transmission Date: 20080703
  Serious: Yes (Life-Threatening)
  Sender: FDA-Public Use
  Company Number: US-SP-2008-00373

PATIENT
  Age: 73 Year
  Sex: Male

DRUGS (9)
  1. THERACYS [Suspect]
     Indication: BLADDER CANCER
     Route: 043
     Dates: start: 20070801
  2. ACTOS [Concomitant]
  3. CELEBREX [Concomitant]
  4. METFORMIN [Concomitant]
  5. CADUET [Concomitant]
  6. LISINOPRIL [Concomitant]
  7. HYDROCHLOROTHIAZIDE [Concomitant]
  8. METOPROLOL TARTRATE [Concomitant]
  9. ASPIRIN [Concomitant]

REACTIONS (3)
  - MASS [None]
  - TESTICULAR MASS [None]
  - TUBERCULOSIS [None]
